FAERS Safety Report 8580221-7 (Version None)
Quarter: 2012Q3

REPORT INFORMATION
  Report Type: 
  Country: None (occurrence: None)
  Receive Date: 20120808
  Receipt Date: 20120803
  Transmission Date: 20120928
  Serious: Yes (Other)
  Sender: FDA-Public Use
  Company Number: US-PFIZER INC-2012189404

PATIENT
  Age: 81 Year
  Sex: Female

DRUGS (2)
  1. DETROL LA [Suspect]
     Indication: DYSURIA
     Dosage: 4 MG, ONCE DAILY
     Route: 048
  2. DETROL LA [Suspect]
     Indication: POLLAKIURIA

REACTIONS (3)
  - FALL [None]
  - GAIT DISTURBANCE [None]
  - DRUG INEFFECTIVE [None]
